FAERS Safety Report 16795212 (Version 1)
Quarter: 2019Q3

REPORT INFORMATION
  Report Type: Spontaneous
  Country: CN (occurrence: CN)
  Receive Date: 20190911
  Receipt Date: 20190911
  Transmission Date: 20191005
  Serious: Yes (Other)
  Sender: FDA-Public Use
  Company Number: CN-PFIZER INC-2019389627

PATIENT
  Age: 41 Year
  Sex: Female

DRUGS (1)
  1. TAZOCIN [Suspect]
     Active Substance: PIPERACILLIN SODIUM\TAZOBACTAM SODIUM
     Indication: INFECTION
     Dosage: 4.5 G, 4X/DAY
     Route: 041

REACTIONS (5)
  - Anaphylactic shock [Unknown]
  - Blood pressure decreased [Unknown]
  - Cardiac failure [Unknown]
  - Rash generalised [Unknown]
  - Heart rate increased [Unknown]
